FAERS Safety Report 17727588 (Version 5)
Quarter: 2020Q4

REPORT INFORMATION
  Report Type: Report from Study
  Country: US (occurrence: US)
  Receive Date: 20200430
  Receipt Date: 20201008
  Transmission Date: 20210113
  Serious: No
  Sender: FDA-Public Use
  Company Number: NVSC2020US115475

PATIENT
  Sex: Female

DRUGS (1)
  1. COSENTYX [Suspect]
     Active Substance: SECUKINUMAB
     Indication: PSORIASIS
     Dosage: 300 MG, QMO
     Route: 058
     Dates: start: 20200327

REACTIONS (8)
  - Skin lesion [Unknown]
  - Product dose omission issue [Unknown]
  - Rash [Recovering/Resolving]
  - Post-traumatic stress disorder [Unknown]
  - Therapeutic response decreased [Unknown]
  - Acne [Unknown]
  - Psoriasis [Unknown]
  - Pustule [Unknown]

NARRATIVE: CASE EVENT DATE: 2020
